FAERS Safety Report 4370888-1 (Version None)
Quarter: 2004Q2

REPORT INFORMATION
  Report Type: 
  Country: None (occurrence: None)
  Receive Date: 20040601
  Receipt Date: 20040513
  Transmission Date: 20050107
  Serious: No
  Sender: FDA-Public Use
  Company Number: DSA_23945_2004

PATIENT
  Age: 76 Year
  Sex: Female

DRUGS (4)
  1. EPROSARTAN [Suspect]
     Indication: HYPERTENSION
     Dosage: 400 MG Q DAY PO
     Route: 048
     Dates: start: 20011219, end: 20020124
  2. PLAVIX [Concomitant]
  3. NEURONTIN [Concomitant]
  4. ANTRA [Concomitant]

REACTIONS (2)
  - EXANTHEM [None]
  - PRURITUS [None]
